FAERS Safety Report 9771331 (Version 3)
Quarter: 2014Q1

REPORT INFORMATION
  Report Type: Report from Study
  Country: US (occurrence: US)
  Receive Date: 20131218
  Receipt Date: 20140106
  Transmission Date: 20141002
  Serious: Yes (Other)
  Sender: FDA-Public Use
  Company Number: PHEH2013US022794

PATIENT
  Age: 42 Year
  Sex: Male

DRUGS (7)
  1. GILENYA [Suspect]
     Indication: MULTIPLE SCLEROSIS
     Dosage: 0.5 MG, QD
     Route: 048
     Dates: start: 201104
  2. AMANTADINE [Concomitant]
     Indication: FATIGUE
     Dosage: 1 DF, BID
     Route: 048
  3. ZOCOR [Concomitant]
     Dosage: 1 DF, QD
     Route: 048
  4. ZOLOFT [Concomitant]
     Indication: DEPRESSION
     Dosage: 2 DF, DAILY
     Route: 048
  5. BACLOFEN [Concomitant]
     Dosage: 3 DF IN THE MORNING AND 3 DF IN THE EVENING
     Route: 048
  6. NEURONTIN [Concomitant]
     Dosage: 1 DF, TID
     Route: 048
  7. PEPCID [Concomitant]
     Dosage: 1 DF, BID
     Route: 048

REACTIONS (3)
  - Glaucoma [Unknown]
  - Macular oedema [Unknown]
  - Visual impairment [Not Recovered/Not Resolved]
